FAERS Safety Report 20637829 (Version 1)
Quarter: 2022Q1

REPORT INFORMATION
  Report Type: Spontaneous
  Country: US (occurrence: None)
  Receive Date: 20220323
  Receipt Date: 20220323
  Transmission Date: 20220423
  Serious: No
  Sender: FDA-Public Use
  Company Number: None

PATIENT

DRUGS (2)
  1. NALOXONE HCL [Suspect]
     Active Substance: NALOXONE HYDROCHLORIDE
  2. NARCAN [Suspect]
     Active Substance: NALOXONE HYDROCHLORIDE

REACTIONS (2)
  - Device dispensing error [None]
  - Drug administered in wrong device [None]
